FAERS Safety Report 5962263-0 (Version None)
Quarter: 2008Q4

REPORT INFORMATION
  Report Type: 
  Country: None (occurrence: None)
  Receive Date: 20081121
  Receipt Date: 20081117
  Transmission Date: 20090506
  Serious: Yes (Hospitalization)
  Sender: FDA-Public Use
  Company Number: US-B.I. PHARMACEUTICALS,INC./RIDGEFIELD-2008-BP-17452BP

PATIENT
  Sex: Female

DRUGS (12)
  1. COMBIVENT [Suspect]
     Indication: CHRONIC OBSTRUCTIVE PULMONARY DISEASE
     Dosage: 12PUF
     Route: 055
     Dates: start: 20020101
  2. SERAX [Concomitant]
     Indication: ANXIETY
  3. LEXAPRO [Concomitant]
     Indication: ANXIETY
  4. NEXIUM [Concomitant]
     Indication: GASTROOESOPHAGEAL REFLUX DISEASE
  5. ROCALTROL [Concomitant]
     Indication: OSTEOPOROSIS
  6. DARVON [Concomitant]
     Indication: ARTHRITIS
  7. DARVON [Concomitant]
     Indication: FIBROMYALGIA
  8. PULMICORT [Concomitant]
     Indication: BRONCHITIS CHRONIC
  9. DIAZIDE [Concomitant]
     Indication: FLUID RETENTION
  10. ESTRACE [Concomitant]
     Indication: OESTROGEN REPLACEMENT THERAPY
  11. ASTELIN [Concomitant]
     Indication: MULTIPLE ALLERGIES
  12. CARAFATE [Concomitant]
     Indication: IRRITABLE BOWEL SYNDROME

REACTIONS (1)
  - PNEUMONIA [None]
